FAERS Safety Report 21482184 (Version 2)
Quarter: 2022Q4

REPORT INFORMATION
  Report Type: Spontaneous
  Country: ZA (occurrence: ZA)
  Receive Date: 20221020
  Receipt Date: 20221027
  Transmission Date: 20230113
  Serious: Yes (Death, Hospitalization, Other)
  Sender: FDA-Public Use
  Company Number: ZA-ROCHE-3196955

PATIENT
  Sex: Male

DRUGS (1)
  1. MIRCERA [Suspect]
     Active Substance: METHOXY POLYETHYLENE GLYCOL-EPOETIN BETA
     Indication: Product used for unknown indication
     Route: 042
     Dates: start: 20160515, end: 20220801

REACTIONS (4)
  - Blood glucose increased [Fatal]
  - Fall [Unknown]
  - Hip fracture [Unknown]
  - Tibia fracture [Unknown]

NARRATIVE: CASE EVENT DATE: 20220101
